FAERS Safety Report 14383276 (Version 1)
Quarter: 2018Q1

REPORT INFORMATION
  Report Type: Spontaneous
  Country: ES (occurrence: ES)
  Receive Date: 20180115
  Receipt Date: 20180115
  Transmission Date: 20180509
  Serious: Yes (Hospitalization)
  Sender: FDA-Public Use
  Company Number: ES-CIPLA LTD.-2018ES00314

PATIENT

DRUGS (8)
  1. ALLOPURINOL. [Suspect]
     Active Substance: ALLOPURINOL
     Indication: HYPERURICAEMIA
     Dosage: 1 CP, PER DAY
     Route: 048
     Dates: start: 20160527, end: 20170215
  2. VALSARTAN/HCT 32/12.5 [Concomitant]
     Dosage: 1-0-0
     Route: 048
     Dates: start: 20141209
  3. TAMSULOSINA [Concomitant]
     Active Substance: TAMSULOSIN HYDROCHLORIDE
     Indication: BENIGN PROSTATIC HYPERPLASIA
     Dosage: 1 CP
     Route: 048
     Dates: start: 20160527
  4. ASTUDIR 10 [Concomitant]
     Dosage: 1-0-0
     Route: 048
     Dates: start: 20141209
  5. LEVOFLOXACIN. [Suspect]
     Active Substance: LEVOFLOXACIN
     Indication: RESPIRATORY TRACT INFECTION
     Dosage: 500 MG, PER DAY
     Route: 048
     Dates: start: 20170124, end: 20170202
  6. AMOXICILLIN/CLAVULANIC ACID [Suspect]
     Active Substance: AMOXICILLIN\CLAVULANIC ACID
     Indication: RESPIRATORY TRACT INFECTION
     Dosage: 1.1.1
     Route: 048
     Dates: start: 20170117, end: 20170123
  7. AZITHROMYCIN ANHYDROUS. [Suspect]
     Active Substance: AZITHROMYCIN ANHYDROUS
     Indication: RESPIRATORY TRACT INFECTION
     Dosage: 1 CP, PER DAY
     Route: 048
     Dates: start: 20170102, end: 20170106
  8. HIDROFEROL 266 [Concomitant]
     Indication: OSTEOPOROSIS
     Dosage: 1 AMP
     Route: 048
     Dates: start: 20160527

REACTIONS (2)
  - Eosinophilic pleural effusion [Recovered/Resolved]
  - Eosinophilia [Recovering/Resolving]

NARRATIVE: CASE EVENT DATE: 20170221
